FAERS Safety Report 25832438 (Version 1)
Quarter: 2025Q3

REPORT INFORMATION
  Report Type: Spontaneous
  Country: US (occurrence: US)
  Receive Date: 20250922
  Receipt Date: 20250922
  Transmission Date: 20251020
  Serious: Yes (Other)
  Sender: ALCON
  Company Number: US-ALCON LABORATORIES-ALC2025US004797

PATIENT
  Sex: Female

DRUGS (1)
  1. SYSTANE COMPLETE PF [Suspect]
     Active Substance: PROPYLENE GLYCOL
     Indication: Product used for unknown indication
     Route: 047

REACTIONS (4)
  - Blindness transient [Recovering/Resolving]
  - Expired product administered [Unknown]
  - Vision blurred [Recovering/Resolving]
  - Ocular hyperaemia [Recovering/Resolving]
